FAERS Safety Report 4408859-9 (Version None)
Quarter: 2004Q3

REPORT INFORMATION
  Report Type: 
  Country: None (occurrence: None)
  Receive Date: 20040727
  Receipt Date: 20040720
  Transmission Date: 20050211
  Serious: Yes (Hospitalization)
  Sender: FDA-Public Use
  Company Number: JPKYO-S-20040024

PATIENT
  Age: 72 Year
  Sex: Male

DRUGS (9)
  1. NAVELBINE [Suspect]
     Indication: NON-SMALL CELL LUNG CANCER STAGE IV
     Route: 042
     Dates: start: 20011126, end: 20011203
  2. RANDA [Suspect]
     Indication: NON-SMALL CELL LUNG CANCER
     Dates: start: 20011218, end: 20020118
  3. DECADRON [Concomitant]
     Dates: start: 20011126, end: 20020115
  4. KYTRIL [Concomitant]
     Dates: start: 20011126, end: 20020111
  5. PRIMPERAN INJ [Concomitant]
     Dates: start: 20011127, end: 20020115
  6. MANNITOL [Concomitant]
     Dates: start: 20011126, end: 20020111
  7. LASIX [Concomitant]
     Dates: start: 20011126, end: 20020111
  8. MODACIN [Concomitant]
     Dates: start: 20011210, end: 20011215
  9. ISODINE [Concomitant]
     Dates: start: 20020111, end: 20020128

REACTIONS (6)
  - ANGINA PECTORIS [None]
  - CHEST PAIN [None]
  - FLUSHING [None]
  - INSOMNIA [None]
  - PALPITATIONS [None]
  - TOOTHACHE [None]
